FAERS Safety Report 6981327-6 (Version None)
Quarter: 2010Q3

REPORT INFORMATION
  Report Type: 
  Country: None (occurrence: None)
  Receive Date: 20100914
  Receipt Date: 20100907
  Transmission Date: 20110219
  Serious: Yes (Other)
  Sender: FDA-Public Use
  Company Number: US-PURDUE-USA-2010-0046610

PATIENT
  Sex: Female

DRUGS (2)
  1. OXYCONTIN [Suspect]
     Indication: COLON CANCER
  2. OXYCONTIN [Suspect]
     Indication: RECTAL CANCER

REACTIONS (2)
  - HEADACHE [None]
  - THROAT TIGHTNESS [None]
